FAERS Safety Report 16333324 (Version 7)
Quarter: 2021Q1

REPORT INFORMATION
  Report Type: Spontaneous
  Country: US (occurrence: US)
  Receive Date: 20190520
  Receipt Date: 20210127
  Transmission Date: 20210419
  Serious: Yes (Hospitalization, Other)
  Sender: FDA-Public Use
  Company Number: US-PFIZER INC-2019211208

PATIENT
  Age: 55 Year
  Sex: Female

DRUGS (1)
  1. IBRANCE [Suspect]
     Active Substance: PALBOCICLIB
     Indication: BREAST CANCER FEMALE
     Dosage: 125 MG, UNK

REACTIONS (5)
  - Pneumonia [Unknown]
  - Malaise [Unknown]
  - Diabetes mellitus [Unknown]
  - COVID-19 [Unknown]
  - Hypertension [Unknown]

NARRATIVE: CASE EVENT DATE: 2019
